FAERS Safety Report 11426875 (Version 1)
Quarter: 2015Q3

REPORT INFORMATION
  Report Type: Spontaneous
  Country: US (occurrence: US)
  Receive Date: 20150821
  Receipt Date: 20150821
  Transmission Date: 20151125
  Serious: No
  Sender: FDA-Public Use
  Company Number: US-ELI_LILLY_AND_COMPANY-US201308009249

PATIENT
  Sex: Female

DRUGS (2)
  1. ADCIRCA [Suspect]
     Active Substance: TADALAFIL
     Indication: PULMONARY ARTERIAL HYPERTENSION
     Dosage: 20 MG, UNK
     Dates: start: 20130722, end: 20130822
  2. ADCIRCA [Suspect]
     Active Substance: TADALAFIL
     Dosage: 10 MG, UNK

REACTIONS (2)
  - Malaise [Recovered/Resolved]
  - Blood pressure decreased [Recovered/Resolved]
